FAERS Safety Report 8593659-9 (Version None)
Quarter: 2012Q3

REPORT INFORMATION
  Report Type: 
  Country: None (occurrence: None)
  Receive Date: 20120814
  Receipt Date: 20120801
  Transmission Date: 20120928
  Serious: Yes (Hospitalization)
  Sender: FDA-Public Use
  Company Number: FR-FRI-1000037746

PATIENT
  Sex: Female

DRUGS (3)
  1. ESCITALOPRAM [Suspect]
     Dosage: ONE INTAKE OF 10 TAB. OF 10 MG
     Route: 048
     Dates: start: 20120430, end: 20120430
  2. ORAP [Suspect]
     Dosage: ONE INTAKE OF 10 TAB. OF 1 MG
     Route: 048
     Dates: start: 20120430, end: 20120430
  3. PAROXETINE [Suspect]
     Dosage: ONE INTAKE OF 2 TAB. OF 20 MG
     Route: 048
     Dates: start: 20120430, end: 20120430

REACTIONS (3)
  - DYSTONIA [None]
  - MULTIPLE DRUG OVERDOSE [None]
  - VENTRICULAR EXTRASYSTOLES [None]
